FAERS Safety Report 15535372 (Version 2)
Quarter: 2018Q4

REPORT INFORMATION
  Report Type: Spontaneous
  Country: US (occurrence: US)
  Receive Date: 20181022
  Receipt Date: 20181106
  Transmission Date: 20190205
  Serious: No
  Sender: FDA-Public Use
  Company Number: US-HETERO CORPORATE-HET2018US01075

PATIENT
  Age: 30 Year
  Sex: Female
  Weight: 45 kg

DRUGS (2)
  1. LOSARTAN. [Suspect]
     Active Substance: LOSARTAN
     Indication: PRODUCT USED FOR UNKNOWN INDICATION
     Dosage: UNK
  2. MONTELUKAST [Suspect]
     Active Substance: MONTELUKAST SODIUM
     Indication: HYPERSENSITIVITY
     Dosage: 10 MG, QD
     Route: 065
     Dates: start: 201808, end: 201809

REACTIONS (3)
  - Product dispensing error [Unknown]
  - Incorrect dose administered [Unknown]
  - Hypotension [Unknown]

NARRATIVE: CASE EVENT DATE: 201809
